FAERS Safety Report 4736617-4 (Version None)
Quarter: 2005Q3

REPORT INFORMATION
  Report Type: 
  Country: None (occurrence: None)
  Receive Date: 20050808
  Receipt Date: 20050726
  Transmission Date: 20060218
  Serious: Yes (Other)
  Sender: FDA-Public Use
  Company Number: US-AMGEN-US144114

PATIENT
  Sex: Female

DRUGS (5)
  1. ENBREL [Suspect]
     Indication: ANKYLOSING SPONDYLITIS
     Dates: start: 20031009, end: 20050711
  2. PLAVIX [Concomitant]
  3. ASPIRIN [Concomitant]
  4. EZETIMIBE [Concomitant]
  5. SIMVASTATIN [Concomitant]

REACTIONS (1)
  - GUILLAIN-BARRE SYNDROME [None]
